FAERS Safety Report 7882389-4 (Version None)
Quarter: 2011Q4

REPORT INFORMATION
  Report Type: 
  Country: None (occurrence: None)
  Receive Date: 20111101
  Receipt Date: 20110614
  Transmission Date: 20120403
  Serious: No
  Sender: FDA-Public Use
  Company Number: US-AMGEN-USASP2011030503

PATIENT

DRUGS (1)
  1. ENBREL [Suspect]
     Indication: PSORIASIS
     Dosage: UNK

REACTIONS (5)
  - CHEST PAIN [None]
  - VISUAL IMPAIRMENT [None]
  - MIGRAINE [None]
  - HEADACHE [None]
  - EYE PAIN [None]
